FAERS Safety Report 5689149-3 (Version None)
Quarter: 2008Q1

REPORT INFORMATION
  Report Type: 
  Country: None (occurrence: None)
  Receive Date: 20080331
  Receipt Date: 19940712
  Transmission Date: 20080703
  Serious: Yes (Death, Other)
  Sender: FDA-Public Use
  Company Number: GB-ROCHE-940400336001

PATIENT
  Age: 27 Year
  Sex: Male
  Weight: 71 kg

DRUGS (3)
  1. LARIAM [Suspect]
     Indication: MALARIA PROPHYLAXIS
     Route: 048
     Dates: start: 19940527
  2. VALPROATE SODIUM [Interacting]
     Indication: EPILEPSY
     Route: 048
  3. CARBAMAZEPINE [Concomitant]
     Indication: EPILEPSY
     Route: 048

REACTIONS (10)
  - ABNORMAL BEHAVIOUR [None]
  - ACCIDENTAL DEATH [None]
  - DEATH [None]
  - DEPRESSION [None]
  - DROWNING [None]
  - DRUG INTERACTION [None]
  - EPILEPSY [None]
  - FOOT FRACTURE [None]
  - HALLUCINATION [None]
  - PSYCHOTIC DISORDER [None]
